FAERS Safety Report 4578020-6 (Version None)
Quarter: 2005Q1

REPORT INFORMATION
  Report Type: 
  Country: None (occurrence: None)
  Receive Date: 20050209
  Receipt Date: 20050128
  Transmission Date: 20050727
  Serious: Yes (Other)
  Sender: FDA-Public Use
  Company Number: 2005023483

PATIENT
  Age: 57 Year
  Sex: Female

DRUGS (5)
  1. CLINDAMYCIN HYDROCHLORIDE [Suspect]
     Indication: PNEUMONIA
     Dosage: 1800 MG (450 MG, 4 IN 1 D) ORAL
     Route: 048
     Dates: start: 20041230, end: 20050102
  2. MORPHINE SULFATE [Concomitant]
  3. DIHYDROCHLORIDE (DIHYDROCODEINE) [Concomitant]
  4. WARFARIN SODIUM [Concomitant]
  5. ACETAMINOPHEN [Concomitant]

REACTIONS (1)
  - INTERNATIONAL NORMALISED RATIO INCREASED [None]
